FAERS Safety Report 7635945-2 (Version None)
Quarter: 2011Q3

REPORT INFORMATION
  Report Type: 
  Country: None (occurrence: None)
  Receive Date: 20110726
  Receipt Date: 20110713
  Transmission Date: 20111222
  Serious: Yes (Other)
  Sender: FDA-Public Use
  Company Number: US-ROCHE-770952

PATIENT
  Age: 25 Year
  Sex: Male
  Weight: 45.4 kg

DRUGS (1)
  1. ACCUTANE [Suspect]
     Indication: ACNE
     Dosage: USED FOR 6 MONTHS
     Route: 065
     Dates: start: 19920101, end: 19930101

REACTIONS (6)
  - INFLAMMATORY BOWEL DISEASE [None]
  - DEPRESSION [None]
  - COLITIS ULCERATIVE [None]
  - DYSPLASIA [None]
  - POST-TRAUMATIC STRESS DISORDER [None]
  - PANCREATITIS [None]
